FAERS Safety Report 16696841 (Version 3)
Quarter: 2021Q1

REPORT INFORMATION
  Report Type: Spontaneous
  Country: BE (occurrence: BE)
  Receive Date: 20190813
  Receipt Date: 20210225
  Transmission Date: 20210419
  Serious: Yes (Life-Threatening, Hospitalization)
  Sender: FDA-Public Use
  Company Number: BE-JNJFOC-20190808176

PATIENT
  Age: 56 Year
  Sex: Female
  Weight: 88 kg

DRUGS (2)
  1. TREMFYA [Suspect]
     Active Substance: GUSELKUMAB
     Indication: PSORIASIS
     Route: 058
     Dates: start: 20180817, end: 20190801
  2. TREMFYA [Suspect]
     Active Substance: GUSELKUMAB

REACTIONS (2)
  - Intracardiac thrombus [Unknown]
  - Cardiac arrest [Unknown]

NARRATIVE: CASE EVENT DATE: 2019
